FAERS Safety Report 6487589-6 (Version None)
Quarter: 2009Q4

REPORT INFORMATION
  Report Type: 
  Country: None (occurrence: None)
  Receive Date: 20091210
  Receipt Date: 20090821
  Transmission Date: 20100525
  Serious: No
  Sender: FDA-Public Use
  Company Number: US-AMGEN-KDL361278

PATIENT
  Sex: Female
  Weight: 73.5 kg

DRUGS (8)
  1. ENBREL [Suspect]
     Indication: PSORIATIC ARTHROPATHY
     Dates: start: 20090101
  2. HUMIRA [Suspect]
     Route: 058
     Dates: start: 20090706
  3. LEVOTHYROXINE SODIUM [Concomitant]
  4. LEFLUNOMIDE [Concomitant]
  5. MELOXICAM [Concomitant]
  6. HALOBETASOL [Concomitant]
  7. ERGOCALCIFEROL [Concomitant]
  8. CALCIUM SANDOZ C [Concomitant]

REACTIONS (4)
  - COUGH [None]
  - DRUG INEFFECTIVE [None]
  - NASOPHARYNGITIS [None]
  - RHINORRHOEA [None]
